FAERS Safety Report 15183612 (Version 1)
Quarter: 2018Q3

REPORT INFORMATION
  Report Type: Spontaneous
  Country: US (occurrence: US)
  Receive Date: 20180723
  Receipt Date: 20180723
  Transmission Date: 20181010
  Serious: No
  Sender: FDA-Public Use
  Company Number: US-ASTRAZENECA-2018SE84862

PATIENT
  Age: 72 Year
  Sex: Male

DRUGS (1)
  1. BYDUREON BCISE [Suspect]
     Active Substance: EXENATIDE
     Route: 065

REACTIONS (10)
  - Feeding disorder [Unknown]
  - Vomiting [Unknown]
  - Hyperhidrosis [Unknown]
  - Malaise [Unknown]
  - Cold sweat [Unknown]
  - Weight decreased [Unknown]
  - Influenza [Unknown]
  - Tremor [Unknown]
  - Visual impairment [Unknown]
  - Dizziness [Unknown]
